FAERS Safety Report 8586486-X (Version None)
Quarter: 2012Q3

REPORT INFORMATION
  Report Type: 
  Country: None (occurrence: None)
  Receive Date: 20120810
  Receipt Date: 20120802
  Transmission Date: 20120928
  Serious: Yes (Hospitalization)
  Sender: FDA-Public Use
  Company Number: IT-BRISTOL-MYERS SQUIBB COMPANY-16613416

PATIENT
  Age: 72 Year
  Sex: Female

DRUGS (2)
  1. IRINOTECAN HCL [Concomitant]
     Indication: COLORECTAL CANCER
     Dosage: INFUSION
     Route: 042
     Dates: start: 20100714, end: 20100714
  2. ERBITUX [Suspect]
     Indication: COLORECTAL CANCER
     Route: 042
     Dates: start: 20100714, end: 20100714

REACTIONS (2)
  - FEBRILE NEUTROPENIA [None]
  - THROMBOCYTOPENIA [None]
